FAERS Safety Report 4616235-9 (Version None)
Quarter: 2005Q1

REPORT INFORMATION
  Report Type: 
  Country: None (occurrence: None)
  Receive Date: 20050321
  Receipt Date: 20050308
  Transmission Date: 20050727
  Serious: Yes (Other)
  Sender: FDA-Public Use
  Company Number: 2005038606

PATIENT
  Age: 61 Year
  Sex: Female
  Weight: 65.7716 kg

DRUGS (13)
  1. NICOTROL [Suspect]
     Indication: SMOKING CESSATION THERAPY
     Dosage: 1 - 1/2 (15 MG) PATCH, TRANSDERMAL
     Route: 062
     Dates: start: 20050222, end: 20050308
  2. NICOTINE [Concomitant]
  3. PHENYTOIN SODIUM [Concomitant]
  4. VALPROATE SODIUM [Concomitant]
  5. RISPERDAL [Concomitant]
  6. FLUPHENAZINE HYDROCHLORIDE (FLUPHENAZINE HYDROCHLORIDE) [Concomitant]
  7. ETANERCEPT (ETANERCEPT) [Concomitant]
  8. CALCIUM (CALCIUM) [Concomitant]
  9. TOCOPHEROL (TOCOPHEROL) [Concomitant]
  10. CYANOCOBALAMIN [Concomitant]
  11. MELOXICAM [Concomitant]
  12. LEVETIRACETAM [Concomitant]
  13. VITAMINS NOS (VITAMINS NOS) [Concomitant]

REACTIONS (5)
  - CONVULSION [None]
  - FEELING ABNORMAL [None]
  - INCOHERENT [None]
  - IRRITABILITY [None]
  - NERVOUSNESS [None]
